FAERS Safety Report 5248841-5 (Version None)
Quarter: 2007Q1

REPORT INFORMATION
  Report Type: 
  Country: None (occurrence: None)
  Receive Date: 20070228
  Receipt Date: 20060316
  Transmission Date: 20070707
  Serious: No
  Sender: FDA-Public Use
  Company Number: US-GLAXOSMITHKLINE-A0596502A

PATIENT
  Sex: Female

DRUGS (5)
  1. VALTREX [Suspect]
     Indication: HERPES VIRUS INFECTION
     Dosage: 500MG FOUR TIMES PER DAY
     Route: 048
     Dates: start: 20051101
  2. AMARYL [Concomitant]
  3. SYNTHROID [Concomitant]
  4. SYNTHROID [Concomitant]
  5. HIGH BLOOD PRESSURE PILL [Concomitant]

REACTIONS (1)
  - DRUG INEFFECTIVE [None]
